FAERS Safety Report 8488004 (Version 3)
Quarter: 2012Q4

REPORT INFORMATION
  Report Type: 
  Country: CA (occurrence: CA)
  Receive Date: 20120402
  Receipt Date: 20120928
  Transmission Date: 20130627
  Serious: Yes (Other)
  Sender: FDA-Public Use
  Company Number: CA-PFIZER INC-2012077318

PATIENT
  Age: 76 Year
  Sex: Female

DRUGS (3)
  1. XALATAN [Suspect]
     Indication: GLAUCOMA
     Dosage: 1 Gtt, 1x/day, each eye
     Route: 047
     Dates: start: 2007
  2. SYNTHROID [Concomitant]
     Indication: HYPERTHYROIDISM
     Dosage: 0.112 mg, alternate day
     Route: 048
  3. SYNTHROID [Concomitant]
     Dosage: 0.1 mg, alternate day
     Route: 048

REACTIONS (4)
  - Cataract [Recovered/Resolved]
  - Blepharal pigmentation [Not Recovered/Not Resolved]
  - Erythema of eyelid [Not Recovered/Not Resolved]
  - Eye pruritus [Not Recovered/Not Resolved]
